FAERS Safety Report 9592057 (Version 1)
Quarter: 2013Q4

REPORT INFORMATION
  Report Type: Spontaneous
  Country: US (occurrence: US)
  Receive Date: 20131004
  Receipt Date: 20131004
  Transmission Date: 20140711
  Serious: Yes (Other)
  Sender: FDA-Public Use
  Company Number: US-AMGEN-USASP2013069373

PATIENT
  Age: 66 Year
  Sex: Male

DRUGS (1)
  1. ENBREL [Suspect]
     Indication: REITER^S SYNDROME
     Dosage: 50 MG, QWK
     Route: 065
     Dates: start: 20110301

REACTIONS (1)
  - Hepatitis C [Not Recovered/Not Resolved]
